FAERS Safety Report 9156151 (Version 3)
Quarter: 2013Q2

REPORT INFORMATION
  Report Type: Report from Study
  Country: JP (occurrence: JP)
  Receive Date: 20130311
  Receipt Date: 20130610
  Transmission Date: 20140414
  Serious: Yes (Life-Threatening, Other)
  Sender: FDA-Public Use
  Company Number: JP-OTSUKA-JP-2013-10591

PATIENT
  Age: 83 Year
  Sex: Male
  Weight: 54.8 kg

DRUGS (19)
  1. SAMSCA [Suspect]
     Indication: FLUID RETENTION
     Dosage: 7.5 MG MILLIGRAM(S), QAM
     Route: 048
     Dates: start: 20130118, end: 20130120
  2. SAMSCA [Suspect]
     Dosage: 15 MG MILLIGRAM(S), QAM
     Route: 048
     Dates: start: 20130121
  3. LASIX [Concomitant]
     Indication: CARDIAC FAILURE
     Dosage: 40 MG MILLIGRAM(S), DAILY DOSE
     Route: 048
  4. ITOROL [Concomitant]
     Dosage: 40 MG MILLIGRAM(S), DAILY DOSE
     Route: 048
  5. PANALDINE [Concomitant]
     Dosage: 200 MG MILLIGRAM(S), DAILY DOSE
     Route: 048
  6. BAYASPIRIN [Concomitant]
     Dosage: 100 MG MILLIGRAM(S), DAILY DOSE
     Route: 048
  7. RENIVACE [Concomitant]
     Dosage: 2.5 MG MILLIGRAM(S), DAILY DOSE
     Route: 048
  8. THYRADIN S [Concomitant]
     Dosage: 50 MCG, DAILY DOSE
     Route: 048
  9. ACARDI [Concomitant]
     Dosage: 2.5 MG MILLIGRAM(S), DAILY DOSE
     Route: 048
  10. ZYLORIC [Concomitant]
     Dosage: 100 MG MILLIGRAM(S), DAILY DOSE
     Route: 048
  11. TAKEPRON [Concomitant]
     Dosage: 15 MG MILLIGRAM(S), DAILY DOSE
     Route: 048
  12. AMARYL [Concomitant]
     Dosage: 1 MG MILLIGRAM(S), DAILY DOSE
     Route: 048
  13. BONALON [Concomitant]
     Dosage: 35 MG MILLIGRAM(S), QW
     Route: 048
  14. CRESTOR [Concomitant]
     Dosage: 2.5 MG MILLIGRAM(S), DAILY DOSE
     Route: 048
  15. BASEN [Concomitant]
     Dosage: 0.9 MG MILLIGRAM(S), DAILY DOSE
     Route: 048
  16. HEPARIN SODIUM [Concomitant]
     Dosage: 10 ML MILLILITRE(S), DAILY DOSE
     Route: 042
  17. HANP [Concomitant]
     Dosage: 3000 MCG, DAILY DOSE
     Route: 042
  18. PREDONINE [Concomitant]
     Dosage: 5 MG MILLIGRAM(S), DAILY DOSE
     Route: 048
     Dates: start: 20130121
  19. ANCARON [Concomitant]
     Dosage: 750 MG MILLIGRAM(S), DAILY DOSE
     Route: 041
     Dates: start: 20130122, end: 20130123

REACTIONS (4)
  - Cardiac failure [Recovering/Resolving]
  - Hyperkalaemia [Recovering/Resolving]
  - Ventricular tachycardia [Recovering/Resolving]
  - Blood urea increased [Unknown]
